FAERS Safety Report 25130202 (Version 1)
Quarter: 2025Q1

REPORT INFORMATION
  Report Type: Spontaneous
  Country: US (occurrence: US)
  Receive Date: 20250327
  Receipt Date: 20250327
  Transmission Date: 20250409
  Serious: No
  Sender: FRESENIUS KABI
  Company Number: US-FreseniusKabi-FK202504306

PATIENT
  Age: 59 Year
  Sex: Female
  Weight: 76.1 kg

DRUGS (1)
  1. TYENNE [Suspect]
     Active Substance: TOCILIZUMAB-AAZG
     Indication: Rheumatoid arthritis
     Dosage: FORM OF ADMINISTRATION: INJECTION, AUTOINJECTOR PEN?FIRST INJECTION ON 01-NOV-2024?EVERY 2 WEEKS
     Route: 058
     Dates: start: 20241101

REACTIONS (3)
  - Arthralgia [Unknown]
  - Fatigue [Unknown]
  - Headache [Unknown]

NARRATIVE: CASE EVENT DATE: 20241101
